FAERS Safety Report 8366472-5 (Version None)
Quarter: 2012Q2

REPORT INFORMATION
  Report Type: 
  Country: None (occurrence: None)
  Receive Date: 20120517
  Receipt Date: 20120511
  Transmission Date: 20120825
  Serious: Yes (Hospitalization)
  Sender: FDA-Public Use
  Company Number: US-BAYER-2012-048101

PATIENT
  Age: 33 Year
  Sex: Female
  Weight: 113.38 kg

DRUGS (6)
  1. YASMIN [Suspect]
  2. COLESTID [Concomitant]
     Dosage: UNK
     Route: 048
     Dates: start: 20100927
  3. YAZ [Suspect]
  4. NEXIUM [Concomitant]
     Dosage: 40 MG, UNK
     Route: 048
     Dates: start: 20100616, end: 20100903
  5. DROSPIRENONE AND ETHINYL ESTRADIOL [Suspect]
  6. ACETAMINOPHEN W/ CODEINE [Concomitant]
     Dosage: UNK
     Route: 048
     Dates: start: 20100712

REACTIONS (1)
  - PULMONARY EMBOLISM [None]
